FAERS Safety Report 23399779 (Version 1)
Quarter: 2024Q1

REPORT INFORMATION
  Report Type: Spontaneous
  Country: AU (occurrence: AU)
  Receive Date: 20240114
  Receipt Date: 20240114
  Transmission Date: 20240409
  Serious: Yes (Hospitalization)
  Sender: FDA-Public Use
  Company Number: AU-AMGEN-AUSCT2024005863

PATIENT
  Sex: Female

DRUGS (19)
  1. BEVACIZUMAB [Suspect]
     Active Substance: BEVACIZUMAB
     Indication: Colorectal cancer metastatic
     Dosage: 330 MILLIGRAM, QD
     Route: 042
     Dates: start: 20230111
  2. MAGROLIMAB [Suspect]
     Active Substance: MAGROLIMAB
     Indication: Colorectal cancer metastatic
     Dosage: 66.4 MILLIGRAM, QD
     Route: 042
     Dates: start: 20230111
  3. MAGROLIMAB [Suspect]
     Active Substance: MAGROLIMAB
     Dosage: UNK
     Route: 065
     Dates: start: 20231105
  4. MAGROLIMAB [Suspect]
     Active Substance: MAGROLIMAB
     Dosage: CYCLE 8 DAY 1
     Route: 065
     Dates: start: 20230822
  5. MAGROLIMAB [Suspect]
     Active Substance: MAGROLIMAB
     Dosage: CYCLE 9 DAY 1
     Route: 065
     Dates: start: 20230920
  6. FLUOROURACIL [Suspect]
     Active Substance: FLUOROURACIL
     Indication: Colorectal cancer metastatic
     Dosage: 3150 MILLIGRAM, QD
     Route: 042
     Dates: start: 20230111
  7. FLUOROURACIL [Suspect]
     Active Substance: FLUOROURACIL
     Dosage: 530 MILLIGRAM, QD
     Route: 042
     Dates: start: 20230111
  8. IRINOTECAN [Suspect]
     Active Substance: IRINOTECAN
     Indication: Colorectal cancer metastatic
     Dosage: 320 MILLIGRAM, QD
     Route: 042
     Dates: start: 20230111
  9. LEUCOVORIN [Suspect]
     Active Substance: LEUCOVORIN\LEUCOVORIN CALCIUM
     Indication: Colorectal cancer metastatic
     Dosage: 700 MILLIGRAM, QD
     Route: 042
     Dates: start: 20230111
  10. ATROPINE SULFATE [Concomitant]
     Active Substance: ATROPINE SULFATE
  11. DEXAMETHASONE [Concomitant]
     Active Substance: DEXAMETHASONE
  12. LOPERAMIDE [Concomitant]
     Active Substance: LOPERAMIDE
  13. METOCLOPRAMIDE [Concomitant]
     Active Substance: METOCLOPRAMIDE
  14. PALONOSETRON [Concomitant]
     Active Substance: PALONOSETRON
  15. ACETAMINOPHEN [Concomitant]
     Active Substance: ACETAMINOPHEN
  16. PHENERGAN [Concomitant]
     Active Substance: PROMETHAZINE HYDROCHLORIDE
  17. Coloxyl [Concomitant]
  18. SENNA [Concomitant]
     Active Substance: SENNA LEAF\SENNOSIDES\SENNOSIDES A AND B
  19. AKYNZEO [Concomitant]

REACTIONS (1)
  - Liver function test abnormal [Recovering/Resolving]

NARRATIVE: CASE EVENT DATE: 20230717
